FAERS Safety Report 23647318 (Version 1)
Quarter: 2024Q1

REPORT INFORMATION
  Report Type: Spontaneous
  Country: US (occurrence: US)
  Receive Date: 20240319
  Receipt Date: 20240319
  Transmission Date: 20240409
  Serious: Yes (Other)
  Sender: FDA-Public Use
  Company Number: US-CHEPLA-2024003332

PATIENT

DRUGS (2)
  1. HYDROXYUREA [Suspect]
     Active Substance: HYDROXYUREA
     Indication: Sickle cell anaemia
     Dosage: ONE PILL IN THE MORNING AND ONE PILL AT NIGHT SWALLOW WITH WATER (BID)??DAILY DOSE: 2 DOSAGE FORM
  2. OXBRYTA [Suspect]
     Active Substance: VOXELOTOR
     Indication: Sickle cell anaemia
     Dosage: TWO PILLS A DAY SWALLOW WITH WATER OR JUICE IN MORNING??DAILY DOSE: 2 DOSAGE FORM
     Dates: start: 2023

REACTIONS (4)
  - Sickle cell anaemia with crisis [Recovering/Resolving]
  - Intentional product use issue [Unknown]
  - Product dose omission issue [Not Recovered/Not Resolved]
  - Product availability issue [Not Recovered/Not Resolved]

NARRATIVE: CASE EVENT DATE: 20231201
